FAERS Safety Report 11089297 (Version 6)
Quarter: 2016Q2

REPORT INFORMATION
  Report Type: Spontaneous
  Country: CA (occurrence: CA)
  Receive Date: 20150505
  Receipt Date: 20160530
  Transmission Date: 20160815
  Serious: Yes (Hospitalization, Other)
  Sender: FDA-Public Use
  Company Number: CA-ROCHE-1506537

PATIENT
  Age: 66 Year
  Sex: Male

DRUGS (5)
  1. XOLAIR [Suspect]
     Active Substance: OMALIZUMAB
     Indication: ASTHMA
     Route: 058
     Dates: start: 20141126
  2. LOSARTAN. [Concomitant]
     Active Substance: LOSARTAN
  3. ZENHALE [Concomitant]
     Active Substance: FORMOTEROL FUMARATE\MOMETASONE FUROATE
  4. HYDROCHLOROTHIAZIDE. [Concomitant]
     Active Substance: HYDROCHLOROTHIAZIDE
  5. VENTOLIN [Concomitant]
     Active Substance: ALBUTEROL SULFATE
     Dosage: 1-2 TIMES A DAY
     Route: 065

REACTIONS (11)
  - Therapeutic response decreased [Unknown]
  - Obstructive airways disorder [Unknown]
  - Gastric infection [Unknown]
  - Confusional state [Unknown]
  - Asthma [Unknown]
  - Nosocomial infection [Unknown]
  - Intestinal perforation [Unknown]
  - Total lung capacity decreased [Unknown]
  - Nasopharyngitis [Unknown]
  - Bronchitis [Unknown]
  - Frustration tolerance decreased [Unknown]

NARRATIVE: CASE EVENT DATE: 201412
